FAERS Safety Report 13850220 (Version 1)
Quarter: 2017Q3

REPORT INFORMATION
  Report Type: Spontaneous
  Country: US (occurrence: US)
  Receive Date: 20170809
  Receipt Date: 20170809
  Transmission Date: 20171127
  Serious: Yes (Hospitalization)
  Sender: FDA-Public Use
  Company Number: US-SCIEGEN PHARMACEUTICALS INC-2017SCILIT00513

PATIENT
  Age: 56 Year
  Sex: Male

DRUGS (2)
  1. INSULIN DRIP [Concomitant]
     Indication: DIABETIC KETOACIDOSIS
     Dosage: UNK
     Route: 065
  2. METFORMIN HYDROCHLORIDE TABLETS, USP [Suspect]
     Active Substance: METFORMIN HYDROCHLORIDE
     Indication: TYPE 2 DIABETES MELLITUS
     Dosage: UNK
     Route: 065

REACTIONS (2)
  - Intentional overdose [Not Recovered/Not Resolved]
  - Lactic acidosis [Recovering/Resolving]
